FAERS Safety Report 8105395-3 (Version None)
Quarter: 2012Q1

REPORT INFORMATION
  Report Type: 
  Country: None (occurrence: None)
  Receive Date: 20120201
  Receipt Date: 20120123
  Transmission Date: 20120608
  Serious: Yes (Other)
  Sender: FDA-Public Use
  Company Number: US-ASTRAZENECA-2009SE28108

PATIENT
  Age: 48 Year
  Sex: Male
  Weight: 77.1 kg

DRUGS (7)
  1. VENTOLIN DS [Concomitant]
     Indication: EMERGENCY CARE
  2. ROLAIDS [Concomitant]
     Dosage: 8-10 TABLETS/DAY
  3. NEXIUM [Suspect]
     Route: 048
     Dates: start: 20090301
  4. GABAPENTIN [Concomitant]
     Indication: INFLAMMATION
  5. PRILOSEC OTC [Suspect]
     Route: 048
  6. ADVAIR DISKUS 100/50 [Concomitant]
     Indication: CHRONIC OBSTRUCTIVE PULMONARY DISEASE
     Dosage: 25/50
  7. HYDROCODONE BITARTRATE [Concomitant]
     Indication: PAIN
     Dosage: AS REQUIRED

REACTIONS (7)
  - DYSPNOEA [None]
  - DRUG DOSE OMISSION [None]
  - ROAD TRAFFIC ACCIDENT [None]
  - CHRONIC OBSTRUCTIVE PULMONARY DISEASE [None]
  - PULMONARY OEDEMA [None]
  - PNEUMONIA [None]
  - DRUG INEFFECTIVE [None]
